FAERS Safety Report 5100090-7 (Version None)
Quarter: 2006Q3

REPORT INFORMATION
  Report Type: 
  Country: None (occurrence: None)
  Receive Date: 20060908
  Receipt Date: 20060602
  Transmission Date: 20061208
  Serious: Yes (Other)
  Sender: FDA-Public Use
  Company Number: US-BOEHRINGER INGELHEIM PHARMACEUTICALS, INC.-2006-BP-06250BP

PATIENT
  Age: 78 Year
  Sex: Male

DRUGS (2)
  1. FLOMAX [Suspect]
     Indication: PROSTATE CANCER
     Dosage: 0.4 MG EVERY OTHER DAY
     Route: 048
     Dates: start: 20020101
  2. LIPITOR [Concomitant]
     Indication: HYPERLIPIDAEMIA

REACTIONS (3)
  - METASTASES TO BONE [None]
  - METASTATIC NEOPLASM [None]
  - PROSTATIC SPECIFIC ANTIGEN INCREASED [None]
